FAERS Safety Report 8164717-8 (Version None)
Quarter: 2012Q1

REPORT INFORMATION
  Report Type: 
  Country: None (occurrence: None)
  Receive Date: 20120227
  Receipt Date: 20120215
  Transmission Date: 20120608
  Serious: Yes (Hospitalization)
  Sender: FDA-Public Use
  Company Number: US-BIOGENIDEC-2012BI003169

PATIENT
  Age: 51 Year
  Sex: Female

DRUGS (18)
  1. LEXAPRO [Concomitant]
  2. BECONASE [Concomitant]
  3. AMITIZA [Concomitant]
  4. LOVAZA [Concomitant]
  5. BOWEL FLUSH (NOS) [Concomitant]
  6. TYSABRI [Suspect]
     Indication: MULTIPLE SCLEROSIS
     Route: 042
     Dates: start: 20110901
  7. PROVIGIL [Concomitant]
  8. MIRALAX [Concomitant]
  9. CRANBERRY (NOS) [Concomitant]
  10. VITAMIN B-100 [Concomitant]
  11. LISINOPRIL [Concomitant]
  12. POTASSIUM CHLORIDE [Concomitant]
  13. VALIUM [Concomitant]
  14. BUMEX [Concomitant]
  15. HYDROCODONE BITARTRATE [Concomitant]
  16. ZOLOFT [Concomitant]
  17. BACLOFEN [Concomitant]
  18. FLEXERIL [Concomitant]

REACTIONS (1)
  - PNEUMONIA [None]
